FAERS Safety Report 4481793-4 (Version None)
Quarter: 2004Q4

REPORT INFORMATION
  Report Type: 
  Country: None (occurrence: None)
  Receive Date: 20041021
  Receipt Date: 20041018
  Transmission Date: 20050328
  Serious: Yes (Life-Threatening, Hospitalization, Disabling)
  Sender: FDA-Public Use
  Company Number: US-MERCK-0410USA02693

PATIENT
  Age: 71 Year
  Sex: Female

DRUGS (4)
  1. VIOXX [Suspect]
     Indication: BACK PAIN
     Route: 048
     Dates: start: 20010410, end: 20040801
  2. COUMADIN [Concomitant]
     Route: 065
  3. TYLENOL [Concomitant]
     Route: 065
  4. BEXTRA [Concomitant]
     Route: 065

REACTIONS (2)
  - DRUG INEFFECTIVE [None]
  - THROMBOSIS [None]
